FAERS Safety Report 9229631 (Version 1)
Quarter: 2013Q2

REPORT INFORMATION
  Report Type: Spontaneous
  Country: NL (occurrence: NL)
  Receive Date: 20130415
  Receipt Date: 20130415
  Transmission Date: 20140414
  Serious: Yes (Other)
  Sender: FDA-Public Use
  Company Number: NL-MERCK-1303NLD000730

PATIENT
  Age: 53 Year
  Sex: Female
  Weight: 71 kg

DRUGS (9)
  1. INTRONA [Suspect]
     Indication: HEPATITIS C
     Dosage: DAILY DOSE: 18 MILJ/E
     Route: 058
     Dates: start: 20040421, end: 20040712
  2. REBETOL [Suspect]
     Indication: HEPATITIS C
     Dosage: UNK
     Route: 048
     Dates: start: 20040421, end: 20040712
  3. REBETOL [Suspect]
     Dosage: UNK
     Route: 048
     Dates: start: 19991008, end: 200004
  4. PEGINTRON [Suspect]
     Indication: HEPATITIS C
  5. ROFERON-A [Suspect]
     Indication: HEPATITIS C
     Dosage: 9 MILJ/E
     Route: 058
     Dates: start: 19991008, end: 200004
  6. AMANTADINE HYDROCHLORIDE [Concomitant]
     Indication: HEPATITIS C
     Dosage: UNK
     Route: 048
     Dates: start: 20040421, end: 20040712
  7. URSOCHOL [Concomitant]
     Indication: HEPATITIS C
     Dosage: UNK
     Route: 048
     Dates: start: 19991008, end: 200004
  8. THYRAX [Concomitant]
     Indication: HYPOTHYROIDISM
     Dosage: 100 MG, UNK
     Route: 048
     Dates: start: 200004
  9. PROZAC [Concomitant]
     Indication: DEPRESSION
     Dosage: 20 MG, UNK
     Route: 048
     Dates: start: 19991124, end: 2000

REACTIONS (3)
  - Cognitive disorder [Not Recovered/Not Resolved]
  - Impaired work ability [Not Recovered/Not Resolved]
  - Disturbance in attention [Not Recovered/Not Resolved]
